FAERS Safety Report 8695313 (Version 3)
Quarter: 2012Q4

REPORT INFORMATION
  Report Type: 
  Country: FR (occurrence: FR)
  Receive Date: 20120731
  Receipt Date: 20121003
  Transmission Date: 20130627
  Serious: Yes (Hospitalization, Disabling)
  Sender: FDA-Public Use
  Company Number: FR-ELI_LILLY_AND_COMPANY-FR201207006608

PATIENT
  Age: 76 Year
  Sex: Female
  Weight: 55 kg

DRUGS (5)
  1. FORSTEO [Suspect]
     Indication: OSTEOPOROSIS POSTMENOPAUSAL
     Dosage: 20 ug, qd
     Route: 058
     Dates: start: 20120424, end: 20120710
  2. CRESTOR [Concomitant]
  3. KENZEN [Concomitant]
  4. TENORDATE [Concomitant]
  5. KARDEGIC [Concomitant]

REACTIONS (9)
  - Cervical vertebral fracture [Recovered/Resolved with Sequelae]
  - Fall [Recovered/Resolved with Sequelae]
  - Decreased appetite [Unknown]
  - Somnolence [Recovered/Resolved with Sequelae]
  - Malnutrition [Recovered/Resolved with Sequelae]
  - Movement disorder [Not Recovered/Not Resolved]
  - Blindness [Not Recovered/Not Resolved]
  - Hypercalcaemia [Recovered/Resolved with Sequelae]
  - Weight decreased [Unknown]
